FAERS Safety Report 21636944 (Version 3)
Quarter: 2022Q4

REPORT INFORMATION
  Report Type: Spontaneous
  Country: SI (occurrence: SI)
  Receive Date: 20221124
  Receipt Date: 20221226
  Transmission Date: 20230113
  Serious: Yes (Hospitalization, Other)
  Sender: FDA-Public Use
  Company Number: SI-BoehringerIngelheim-2022-BI-203414

PATIENT
  Age: 82 Year
  Sex: Female

DRUGS (7)
  1. LINAGLIPTIN [Suspect]
     Active Substance: LINAGLIPTIN
     Indication: Product used for unknown indication
  2. PERINDOPRIL [Suspect]
     Active Substance: PERINDOPRIL
     Indication: Product used for unknown indication
  3. INDAPAMIDE [Suspect]
     Active Substance: INDAPAMIDE
     Indication: Product used for unknown indication
  4. GLICLAZIDE [Suspect]
     Active Substance: GLICLAZIDE
     Indication: Product used for unknown indication
  5. METAMIZOLE [Suspect]
     Active Substance: METAMIZOLE
     Indication: Arthralgia
     Dosage: 500-1000 MG
     Route: 048
  6. METAMIZOLE [Suspect]
     Active Substance: METAMIZOLE
     Indication: Pain
  7. METFORMIN [Suspect]
     Active Substance: METFORMIN HYDROCHLORIDE
     Indication: Product used for unknown indication

REACTIONS (8)
  - Jaundice [Recovered/Resolved]
  - Drug-induced liver injury [Recovering/Resolving]
  - Ankle fracture [Unknown]
  - Acute hepatic failure [Recovered/Resolved]
  - Vomiting [Unknown]
  - Chromaturia [Unknown]
  - Abdominal pain [Unknown]
  - Faeces discoloured [Unknown]
